FAERS Safety Report 10399675 (Version 1)
Quarter: 2014Q3

REPORT INFORMATION
  Report Type: Spontaneous
  Country: US (occurrence: US)
  Receive Date: 20140821
  Receipt Date: 20140821
  Transmission Date: 20150326
  Serious: Yes (Other)
  Sender: FDA-Public Use
  Company Number: US-BRACCO-011192

PATIENT
  Age: 38 Year
  Sex: Male

DRUGS (5)
  1. CHEMOTHERAPEUTICS [Suspect]
     Active Substance: UNSPECIFIED INGREDIENT
     Indication: CHRONIC LYMPHOCYTIC LEUKAEMIA
     Dates: start: 2014
  2. ISOVUE [Suspect]
     Active Substance: IOPAMIDOL
     Indication: ANGIOGRAM
     Route: 013
     Dates: start: 2014, end: 2014
  3. OMNISCAN [Suspect]
     Active Substance: GADODIAMIDE
     Indication: COMPUTERISED TOMOGRAM
     Route: 042
     Dates: start: 20140723, end: 20140723
  4. CHEMOTHERAPEUTICS [Suspect]
     Active Substance: UNSPECIFIED INGREDIENT
     Indication: CHRONIC LYMPHOCYTIC LEUKAEMIA
     Dates: start: 2014, end: 2014
  5. CHEMOTHERAPEUTICS [Suspect]
     Active Substance: UNSPECIFIED INGREDIENT
     Indication: CHRONIC LYMPHOCYTIC LEUKAEMIA
     Route: 048
     Dates: end: 2014

REACTIONS (1)
  - Renal failure [Recovering/Resolving]

NARRATIVE: CASE EVENT DATE: 2014
